FAERS Safety Report 13183655 (Version 1)
Quarter: 2017Q1

REPORT INFORMATION
  Report Type: Report from Study
  Country: None (occurrence: BR)
  Receive Date: 20170203
  Receipt Date: 20170203
  Transmission Date: 20170428
  Serious: Yes (Other)
  Sender: FDA-Public Use
  Company Number: BR-ABBVIE-17P-020-1860455-00

PATIENT
  Age: 39 Year
  Sex: Male
  Weight: 90 kg

DRUGS (7)
  1. PREBICTAL [Concomitant]
     Active Substance: PREGABALIN
     Indication: PAIN PROPHYLAXIS
     Route: 048
     Dates: start: 2015
  2. PREBICTAL [Concomitant]
     Active Substance: PREGABALIN
     Indication: PAIN PROPHYLAXIS
     Dosage: PATIENT WILL INTERRUPT THE MEDICATION IN AROUND -MAR-2017.
     Route: 048
     Dates: start: 201608
  3. HUMIRA [Suspect]
     Active Substance: ADALIMUMAB
     Indication: CROHN^S DISEASE
     Route: 058
  4. HUMIRA [Suspect]
     Active Substance: ADALIMUMAB
     Indication: CROHN^S DISEASE
     Dosage: LOADING DOSE
     Route: 058
     Dates: start: 20111004, end: 20111004
  5. HUMIRA [Suspect]
     Active Substance: ADALIMUMAB
     Route: 058
  6. AZATHIOPRINE. [Concomitant]
     Active Substance: AZATHIOPRINE
     Indication: CROHN^S DISEASE
     Route: 048
     Dates: start: 2004
  7. HUMIRA [Suspect]
     Active Substance: ADALIMUMAB
     Route: 058

REACTIONS (10)
  - Scoliosis [Not Recovered/Not Resolved]
  - Intervertebral disc protrusion [Unknown]
  - Intervertebral disc protrusion [Unknown]
  - Sciatica [Recovered/Resolved]
  - Incorrect dose administered [Unknown]
  - Intervertebral disc protrusion [Recovered/Resolved]
  - Intervertebral disc protrusion [Recovered/Resolved]
  - Pain [Unknown]
  - Intervertebral disc protrusion [Recovered/Resolved]
  - Intervertebral disc protrusion [Recovered/Resolved]

NARRATIVE: CASE EVENT DATE: 201304
